FAERS Safety Report 24727218 (Version 1)
Quarter: 2024Q4

REPORT INFORMATION
  Report Type: Spontaneous
  Country: US (occurrence: US)
  Receive Date: 20241212
  Receipt Date: 20241212
  Transmission Date: 20250115
  Serious: No
  Sender: PFIZER
  Company Number: US-PFIZER INC-202400233123

PATIENT
  Age: 68 Year
  Sex: Female
  Weight: 89.796 kg

DRUGS (2)
  1. IBRANCE [Suspect]
     Active Substance: PALBOCICLIB
     Indication: Breast neoplasm
     Dosage: DAY 1-21 OF A 28 DAY CYCLE
     Route: 048
     Dates: start: 202001
  2. LETROZOLE [Concomitant]
     Active Substance: LETROZOLE
     Indication: Breast neoplasm
     Dosage: UNK
     Dates: start: 202001

REACTIONS (2)
  - Nausea [Unknown]
  - Diarrhoea [Unknown]

NARRATIVE: CASE EVENT DATE: 20240101
